FAERS Safety Report 24784606 (Version 1)
Quarter: 2024Q4

REPORT INFORMATION
  Report Type: Report from Study
  Country: FR (occurrence: FR)
  Receive Date: 20241227
  Receipt Date: 20241227
  Transmission Date: 20250114
  Serious: Yes (Life-Threatening, Hospitalization)
  Sender: VERITY PHARMACEUTICALS INC.
  Company Number: FR-VER-202400025

PATIENT

DRUGS (1)
  1. TRIPTORELIN [Suspect]
     Active Substance: TRIPTORELIN
     Indication: Product used for unknown indication
     Dosage: POWDER FOR PROLONGED-RELEASE SUSPENSION FOR INJECTION, (IN 1 CYCLICAL).
     Route: 065

REACTIONS (1)
  - Metastases to central nervous system [Not Recovered/Not Resolved]

NARRATIVE: CASE EVENT DATE: 20220511
